FAERS Safety Report 7896252-6 (Version None)
Quarter: 2011Q4

REPORT INFORMATION
  Report Type: 
  Country: None (occurrence: None)
  Receive Date: 20111104
  Receipt Date: 20111104
  Transmission Date: 20120403
  Serious: Yes (Other)
  Sender: FDA-Public Use
  Company Number: None

PATIENT
  Age: 69 Year
  Sex: Male

DRUGS (1)
  1. DEXTRANASE+GLUCOSE OXIDASE+LACTOPEROXIDASE+LYSOZYME+MUTANASE (DEXTRA+G [Suspect]
     Indication: DENTAL CARE
     Dosage: / DENTAL
     Route: 004

REACTIONS (1)
  - TONGUE NEOPLASM [None]
